FAERS Safety Report 8158825-5 (Version None)
Quarter: 2012Q1

REPORT INFORMATION
  Report Type: 
  Country: None (occurrence: None)
  Receive Date: 20120223
  Receipt Date: 20120216
  Transmission Date: 20120608
  Serious: Yes (Other)
  Sender: FDA-Public Use
  Company Number: JP-ASTELLAS-2011JP007918

PATIENT
  Sex: Female

DRUGS (4)
  1. PROGRAF [Suspect]
     Indication: RHEUMATOID ARTHRITIS
     Dosage: 1 MG, UID/QD
     Route: 048
     Dates: start: 20100826
  2. ENBREL [Concomitant]
     Indication: RHEUMATOID ARTHRITIS
     Dosage: 25 MG, UID/QD
     Route: 058
     Dates: start: 20080804
  3. METHOTREXATE [Concomitant]
     Indication: RHEUMATOID ARTHRITIS
     Dosage: 6 MG, UNKNOWN/D
     Route: 048
     Dates: start: 20070919, end: 20110630
  4. METHOTREXATE [Concomitant]
     Dosage: 8 MG, UID/QD
     Route: 048
     Dates: start: 20110630

REACTIONS (1)
  - RETINAL DETACHMENT [None]
